FAERS Safety Report 8248937-X (Version None)
Quarter: 2012Q2

REPORT INFORMATION
  Report Type: 
  Country: None (occurrence: None)
  Receive Date: 20120402
  Receipt Date: 20120320
  Transmission Date: 20120825
  Serious: Yes (Hospitalization, Other)
  Sender: FDA-Public Use
  Company Number: FR-BRISTOL-MYERS SQUIBB COMPANY-16415309

PATIENT
  Age: 12 Year
  Sex: Female

DRUGS (6)
  1. LYSODREN [Suspect]
     Indication: CUSHING'S SYNDROME
     Dosage: 3 DF=3 TABS; DOSE DECREASED TO 2.5 TABS IN DEC-2011
     Route: 048
     Dates: start: 20110701, end: 20120130
  2. VITAMIN K TAB [Concomitant]
     Route: 030
  3. HYDROCORTISONE [Concomitant]
  4. URSOLVAN [Concomitant]
  5. VITAMIN B COMPLEX CAP [Concomitant]
     Route: 030
  6. ALPHA-TOCOPHEROL CAP [Concomitant]

REACTIONS (6)
  - CYTOLYTIC HEPATITIS [None]
  - HEPATITIS ACUTE [None]
  - HEPATIC ENCEPHALOPATHY [None]
  - ALTERED STATE OF CONSCIOUSNESS [None]
  - OFF LABEL USE [None]
  - CHOLESTASIS [None]
